FAERS Safety Report 22328573 (Version 1)
Quarter: 2023Q2

REPORT INFORMATION
  Report Type: Spontaneous
  Country: US (occurrence: US)
  Receive Date: 20230517
  Receipt Date: 20230517
  Transmission Date: 20230722
  Serious: No
  Sender: FDA-Public Use
  Company Number: US-RADIUS HEALTH INC.-2022US006140

PATIENT
  Sex: Female

DRUGS (2)
  1. TYMLOS [Suspect]
     Active Substance: ABALOPARATIDE
     Indication: Product used for unknown indication
     Dosage: 80 MICROGRAM, QD
     Route: 058
     Dates: start: 20221221, end: 20221229
  2. TYMLOS [Suspect]
     Active Substance: ABALOPARATIDE
     Dosage: UNK

REACTIONS (6)
  - Chest discomfort [Unknown]
  - Restlessness [Unknown]
  - Fatigue [Unknown]
  - Heart rate increased [Unknown]
  - Palpitations [Unknown]
  - Dyspnoea [Unknown]
